FAERS Safety Report 22624639 (Version 1)
Quarter: 2023Q2

REPORT INFORMATION
  Report Type: Report from Study
  Country: NL (occurrence: NL)
  Receive Date: 20230621
  Receipt Date: 20230621
  Transmission Date: 20230721
  Serious: Yes (Life-Threatening, Other)
  Sender: FDA-Public Use
  Company Number: NL-MYLANLABS-2023M1017121

PATIENT
  Sex: Female

DRUGS (2)
  1. GLATIRAMER ACETATE [Suspect]
     Active Substance: GLATIRAMER ACETATE
     Indication: Relapsing multiple sclerosis
     Dosage: 40 MILLIGRAM, 3XW
     Route: 058
  2. GLATIRAMER ACETATE [Suspect]
     Active Substance: GLATIRAMER ACETATE
     Dosage: 40 MILLIGRAM EVERY OTHER DAY
     Route: 058

REACTIONS (3)
  - Anaphylactic shock [Recovered/Resolved]
  - Erythema [Recovering/Resolving]
  - Off label use [Unknown]

NARRATIVE: CASE EVENT DATE: 20230612
